FAERS Safety Report 8797643 (Version 1)
Quarter: 2012Q4

REPORT INFORMATION
  Report Type: Spontaneous
  Country: US (occurrence: None)
  Receive Date: 20120914
  Receipt Date: 20120914
  Transmission Date: 20130627
  Serious: Yes (Other)
  Sender: FDA-Public Use
  Company Number: None

PATIENT
  Age: 50 Year
  Sex: Male
  Weight: 134 kg

DRUGS (3)
  1. VANCOMYCIN [Suspect]
     Indication: WOUND INFECTION
     Route: 042
     Dates: start: 20120821, end: 20120824
  2. VANCOMYCIN [Suspect]
     Indication: CELLULITIS
     Route: 042
     Dates: start: 20120821, end: 20120824
  3. VANCOMYCIN [Suspect]

REACTIONS (2)
  - Blood creatine abnormal [None]
  - Blood urea abnormal [None]
